FAERS Safety Report 8643310 (Version 4)
Quarter: 2012Q4

REPORT INFORMATION
  Report Type: 
  Country: US (occurrence: US)
  Receive Date: 20120629
  Receipt Date: 20121003
  Transmission Date: 20130627
  Serious: Yes (Hospitalization, Other)
  Sender: FDA-Public Use
  Company Number: PHEH2012US012792

PATIENT
  Age: 56 None
  Sex: Female

DRUGS (4)
  1. GILENYA [Suspect]
     Indication: MULTIPLE SCLEROSIS
     Dosage: 0.5 mg, QD
     Route: 048
     Dates: start: 201102, end: 20120726
  2. ADVAIR [Concomitant]
  3. POTASSIUM [Concomitant]
  4. ALBUTEROL [Concomitant]

REACTIONS (8)
  - Pneumonia [Not Recovered/Not Resolved]
  - Breast cancer [Unknown]
  - Hepatic enzyme increased [Unknown]
  - Vomiting [Recovered/Resolved]
  - Multiple sclerosis relapse [Recovered/Resolved]
  - Abasia [Recovered/Resolved]
  - Paraesthesia [Recovered/Resolved]
  - Pain [Recovered/Resolved]
